FAERS Safety Report 4871041-5 (Version None)
Quarter: 2005Q4

REPORT INFORMATION
  Report Type: 
  Country: None (occurrence: None)
  Receive Date: 20051115
  Receipt Date: 20050830
  Transmission Date: 20060501
  Serious: Yes (Death)
  Sender: FDA-Public Use
  Company Number: 408533

PATIENT
  Age: 49 Year
  Sex: Male

DRUGS (2)
  1. PEGASYS [Suspect]
     Indication: HEPATITIS
     Dosage: OTHER
     Dates: start: 20050513
  2. COPEGUS [Suspect]
     Indication: HEPATITIS
     Dosage: ORAL
     Route: 048
     Dates: start: 20050513

REACTIONS (1)
  - DEATH [None]
